FAERS Safety Report 18845933 (Version 1)
Quarter: 2021Q1

REPORT INFORMATION
  Report Type: Report from Study
  Country: US (occurrence: US)
  Receive Date: 20210203
  Receipt Date: 20210203
  Transmission Date: 20210419
  Serious: No
  Sender: FDA-Public Use
  Company Number: US-EXELIXIS-CABO-20028826

PATIENT
  Age: 64 Year
  Sex: Female

DRUGS (2)
  1. CABOMETYX [Suspect]
     Active Substance: CABOZANTINIB S-MALATE
     Indication: NON-SMALL CELL LUNG CANCER
  2. CABOMETYX [Suspect]
     Active Substance: CABOZANTINIB S-MALATE
     Indication: NEUROENDOCRINE TUMOUR
     Dosage: 20 MG, QD
     Route: 048
     Dates: start: 20200415

REACTIONS (3)
  - Dry skin [Recovering/Resolving]
  - Blood pressure abnormal [Unknown]
  - Off label use [Unknown]

NARRATIVE: CASE EVENT DATE: 202004
